FAERS Safety Report 4451608-9 (Version None)
Quarter: 2004Q3

REPORT INFORMATION
  Report Type: 
  Country: None (occurrence: None)
  Receive Date: 20040915
  Receipt Date: 20040901
  Transmission Date: 20050211
  Serious: Yes (Other)
  Sender: FDA-Public Use
  Company Number: 2004062064

PATIENT
  Age: 11 Year
  Sex: Male

DRUGS (2)
  1. ZARONTIN [Suspect]
     Indication: PETIT MAL EPILEPSY
     Dosage: ORAL
     Route: 048
     Dates: start: 20040101
  2. VITAMINS (VITAMINS) [Concomitant]

REACTIONS (3)
  - DISEASE RECURRENCE [None]
  - PETIT MAL EPILEPSY [None]
  - PHARMACEUTICAL PRODUCT COMPLAINT [None]
